FAERS Safety Report 11982779 (Version 1)
Quarter: 2016Q1

REPORT INFORMATION
  Report Type: Spontaneous
  Country: US (occurrence: US)
  Receive Date: 20160201
  Receipt Date: 20160201
  Transmission Date: 20160526
  Serious: No
  Sender: FDA-Public Use
  Company Number: US-009507513-1601USA010722

PATIENT
  Age: 60 Year
  Sex: Male

DRUGS (2)
  1. KEYTRUDA [Suspect]
     Active Substance: PEMBROLIZUMAB
     Indication: MALIGNANT MELANOMA
     Dosage: UNK, EVERY THREE WEEKS
     Dates: start: 201503
  2. MELATONIN [Concomitant]
     Active Substance: MELATONIN

REACTIONS (2)
  - Insomnia [Unknown]
  - Therapeutic response unexpected [Unknown]

NARRATIVE: CASE EVENT DATE: 201511
